FAERS Safety Report 10983086 (Version 1)
Quarter: 2015Q2

REPORT INFORMATION
  Report Type: Spontaneous
  Country: GB (occurrence: GB)
  Receive Date: 20150403
  Receipt Date: 20150403
  Transmission Date: 20150821
  Serious: Yes (Other)
  Sender: FDA-Public Use
  Company Number: GB-WATSON-2015-06657

PATIENT
  Age: 82 Year
  Sex: Female
  Weight: 65 kg

DRUGS (12)
  1. BUPRENORPHINE [Suspect]
     Active Substance: BUPRENORPHINE
     Indication: PRODUCT USED FOR UNKNOWN INDICATION
     Dosage: 3 DF TOTAL (APPLY ONE PATCH TO CLEAR HAIRLESS SKIN)
     Route: 062
     Dates: start: 20150220
  2. CITALOPRAM [Concomitant]
     Active Substance: CITALOPRAM HYDROBROMIDE
     Indication: PRODUCT USED FOR UNKNOWN INDICATION
     Dosage: 1 DF, QAM
     Route: 065
     Dates: start: 20140716
  3. EPADERM [Concomitant]
     Indication: PRODUCT USED FOR UNKNOWN INDICATION
     Dosage: UNK(USE INSTEAD OF SOAP TO WASH AFFECTED AREA)
     Route: 065
     Dates: start: 20150203, end: 20150303
  4. LANSOPRAZOLE. [Concomitant]
     Active Substance: LANSOPRAZOLE
     Indication: PRODUCT USED FOR UNKNOWN INDICATION
     Dosage: 1 DF, QAM
     Route: 065
     Dates: start: 20140716
  5. LATANOPROST. [Concomitant]
     Active Substance: LATANOPROST
     Indication: PRODUCT USED FOR UNKNOWN INDICATION
     Dosage: 2 GTT DROP(S) DAILY( ONE DROP ONCE DAILY TO BOTH EYES)
     Route: 050
     Dates: start: 20141001
  6. CARBOMER [Concomitant]
     Active Substance: CARBOMER
     Indication: PRODUCT USED FOR UNKNOWN INDICATION
     Dosage: UNK (ONE DROP 3-4 TIMES/DAY TO BOTH EYES FOR GRITTIN...)
     Route: 050
     Dates: start: 20140716
  7. CLOTRIMAZOLE. [Concomitant]
     Active Substance: CLOTRIMAZOLE
     Indication: PRODUCT USED FOR UNKNOWN INDICATION
     Dosage: UNK, APPLY 2-3 TIMES/DAY
     Route: 065
     Dates: start: 20150203, end: 20150210
  8. FYBOGEL [Concomitant]
     Active Substance: PLANTAGO OVATA SEED
     Indication: PRODUCT USED FOR UNKNOWN INDICATION
     Dosage: 1 DF DAILY( TAKE ONE DAILY WITH PLENTY OF WATER.)
     Route: 065
     Dates: start: 20140716
  9. CODEINE PHOSPHATE [Concomitant]
     Active Substance: CODEINE PHOSPHATE
     Indication: PRODUCT USED FOR UNKNOWN INDICATION
     Dosage: 1 DF PRN (TAKE ONE 4 TIMES/DAY AS NEEDED. LONG TERM USE C...)
     Route: 065
     Dates: start: 20140716, end: 20150220
  10. PARACETAMOL [Concomitant]
     Active Substance: ACETAMINOPHEN
     Indication: PRODUCT USED FOR UNKNOWN INDICATION
     Dosage: 2 DF QID(  TAKE TWO CAPLETS FOUR TIMES/DAY WHEN REQUIRED)
     Route: 048
     Dates: start: 20140716
  11. BECLOMETASONE [Concomitant]
     Active Substance: BECLOMETHASONE DIPROPIONATE
     Indication: PRODUCT USED FOR UNKNOWN INDICATION
     Dosage: 4 DF BID (2 SPRAYS TWICE DAILY INTO EACH NOSTIL)
     Route: 045
     Dates: start: 20140716
  12. COSOPT [Concomitant]
     Active Substance: DORZOLAMIDE HYDROCHLORIDE\TIMOLOL MALEATE
     Indication: PRODUCT USED FOR UNKNOWN INDICATION
     Dosage: 1 DF BID; ONE DROP TWICE DAILY TO RIGHT EYE
     Route: 050
     Dates: start: 20140716

REACTIONS (2)
  - Inflammation [Not Recovered/Not Resolved]
  - Application site rash [Not Recovered/Not Resolved]

NARRATIVE: CASE EVENT DATE: 20150309
